FAERS Safety Report 6747689-X (Version None)
Quarter: 2010Q2

REPORT INFORMATION
  Report Type: 
  Country: None (occurrence: None)
  Receive Date: 20100528
  Receipt Date: 20100518
  Transmission Date: 20101027
  Serious: Yes (Other)
  Sender: FDA-Public Use
  Company Number: ES-ABBOTT-10P-144-0645536-00

PATIENT
  Age: 58 Year
  Sex: Female

DRUGS (4)
  1. HUMIRA [Suspect]
     Indication: PSORIASIS
     Route: 058
     Dates: start: 20100201, end: 20100501
  2. HUMIRA [Suspect]
     Indication: DERMATITIS EXFOLIATIVE
  3. CORTICOIDS [Concomitant]
     Indication: DERMATITIS EXFOLIATIVE
     Dosage: LOW DOSE
     Route: 048
     Dates: start: 20100201, end: 20100501
  4. CORTICOIDS [Concomitant]
     Indication: PSORIASIS

REACTIONS (4)
  - ASTHENIA [None]
  - DECREASED APPETITE [None]
  - DYSGEUSIA [None]
  - MYASTHENIC SYNDROME [None]
